FAERS Safety Report 10029166 (Version 3)
Quarter: 2014Q2

REPORT INFORMATION
  Report Type: Spontaneous
  Country: US (occurrence: US)
  Receive Date: 20140321
  Receipt Date: 20140507
  Transmission Date: 20141212
  Serious: Yes (Disabling, Other)
  Sender: FDA-Public Use
  Company Number: US-GILEAD-2014-0097337

PATIENT
  Sex: Female

DRUGS (2)
  1. LETAIRIS [Suspect]
     Indication: PRODUCT USED FOR UNKNOWN INDICATION
     Dosage: 5 MG, UNK
     Route: 065
     Dates: start: 20140226
  2. LETAIRIS [Suspect]
     Dates: start: 20140226

REACTIONS (7)
  - Blindness [Unknown]
  - Deafness [Unknown]
  - Aphonia [Unknown]
  - Hypersensitivity [Unknown]
  - Throat tightness [Unknown]
  - Skin ulcer [Unknown]
  - Oropharyngeal pain [Unknown]
